FAERS Safety Report 9641127 (Version 1)
Quarter: 2013Q4

REPORT INFORMATION
  Report Type: Report from Study
  Country: MX (occurrence: MX)
  Receive Date: 20131023
  Receipt Date: 20131023
  Transmission Date: 20140711
  Serious: Yes (Disabling)
  Sender: FDA-Public Use
  Company Number: MX-ASTELLAS-2013US010895

PATIENT
  Sex: Male

DRUGS (4)
  1. ERLOTINIB TABLET [Suspect]
     Indication: LUNG NEOPLASM MALIGNANT
     Dosage: 150 MG, UID/QD
     Route: 048
     Dates: start: 2009, end: 201305
  2. ERLOTINIB TABLET [Suspect]
     Dosage: 150 MG, Q12 HOURS
     Route: 048
     Dates: start: 201306
  3. MORPHINE [Concomitant]
     Indication: PROPHYLAXIS
     Dosage: 2 DF, UID/QD
     Route: 065
     Dates: start: 2012
  4. ENALAPRIL [Concomitant]
     Indication: HYPERTENSION
     Dosage: 20 MG, BID
     Route: 048
     Dates: start: 1998

REACTIONS (8)
  - Abasia [Not Recovered/Not Resolved]
  - Insomnia [Not Recovered/Not Resolved]
  - Dyspnoea [Not Recovered/Not Resolved]
  - Fatigue [Not Recovered/Not Resolved]
  - Anxiety [Not Recovered/Not Resolved]
  - Decreased appetite [Not Recovered/Not Resolved]
  - Dry skin [Not Recovered/Not Resolved]
  - Diarrhoea [Not Recovered/Not Resolved]
